FAERS Safety Report 19716325 (Version 1)
Quarter: 2021Q3

REPORT INFORMATION
  Report Type: Report from Study
  Country: None (occurrence: US)
  Receive Date: 20210819
  Receipt Date: 20210819
  Transmission Date: 20211014
  Serious: Yes (Hospitalization)
  Sender: FDA-Public Use
  Company Number: US-ABBVIE-21K-163-4039448-00

PATIENT
  Age: 64 Year
  Sex: Female

DRUGS (1)
  1. HUMIRA [Suspect]
     Active Substance: ADALIMUMAB
     Indication: COLITIS ULCERATIVE
     Route: 058

REACTIONS (6)
  - Colitis [Unknown]
  - Septic shock [Unknown]
  - Colon cancer stage IV [Unknown]
  - Colitis ulcerative [Unknown]
  - Dehydration [Unknown]
  - Intestinal perforation [Unknown]

NARRATIVE: CASE EVENT DATE: 202001
